FAERS Safety Report 19422677 (Version 1)
Quarter: 2021Q2

REPORT INFORMATION
  Report Type: Spontaneous
  Country: US (occurrence: US)
  Receive Date: 20210616
  Receipt Date: 20210616
  Transmission Date: 20210717
  Serious: No
  Sender: FDA-Public Use
  Company Number: None

PATIENT
  Age: 66 Year
  Sex: Male

DRUGS (1)
  1. IVERMECTIN 3 MG TABLET [Suspect]
     Active Substance: IVERMECTIN
     Indication: COVID-19
     Dosage: ?          QUANTITY:160 TABLET(S);OTHER FREQUENCY:IRREGULAR;?
     Route: 048
     Dates: start: 20210615

REACTIONS (1)
  - Product dispensing error [None]

NARRATIVE: CASE EVENT DATE: 20210615
